FAERS Safety Report 9820084 (Version 1)
Quarter: 2014Q1

REPORT INFORMATION
  Report Type: Spontaneous
  Country: US (occurrence: None)
  Receive Date: 20140113
  Receipt Date: 20140113
  Transmission Date: 20141002
  Serious: Yes (Other)
  Sender: FDA-Public Use
  Company Number: None

PATIENT
  Age: 58 Year
  Sex: Male
  Weight: 86.18 kg

DRUGS (11)
  1. CARBAMAZEPINE [Suspect]
     Dosage: 1 + 1/2 PILL
     Route: 048
     Dates: start: 20131127, end: 20140105
  2. LEVOTHYROXINE [Concomitant]
  3. VERAPAMIL [Concomitant]
  4. ATORVASTATIN [Concomitant]
  5. LISINOPRIL [Concomitant]
  6. CITALOPRAM [Concomitant]
  7. CLONAZEPAM [Concomitant]
  8. LOW DOSE ASPIRIN [Concomitant]
  9. MULTI VITAMIN [Concomitant]
  10. HERBAL TEA [Concomitant]
  11. NYQUIL [Concomitant]

REACTIONS (5)
  - Alopecia [None]
  - Dandruff [None]
  - Haemorrhage [None]
  - Burning sensation [None]
  - Arthralgia [None]
